FAERS Safety Report 13741033 (Version 1)
Quarter: 2017Q3

REPORT INFORMATION
  Report Type: Spontaneous
  Country: US (occurrence: US)
  Receive Date: 20170711
  Receipt Date: 20170711
  Transmission Date: 20171127
  Serious: No
  Sender: FDA-Public Use
  Company Number: US-WEST-WARD PHARMACEUTICALS CORP.-US-H14001-16-01664

PATIENT
  Age: 75 Year
  Sex: Female

DRUGS (1)
  1. BUTALBITAL ACETAMINOPHEN AND CAFFEINE TABLETS USP [Suspect]
     Active Substance: ACETAMINOPHEN\BUTALBITAL\CAFFEINE
     Indication: SINUS PAIN
     Route: 048
     Dates: start: 201607

REACTIONS (2)
  - Hiccups [Recovered/Resolved]
  - Eructation [Recovering/Resolving]

NARRATIVE: CASE EVENT DATE: 201607
